FAERS Safety Report 5303724-7 (Version None)
Quarter: 2007Q2

REPORT INFORMATION
  Report Type: 
  Country: None (occurrence: None)
  Receive Date: 20070420
  Receipt Date: 20070412
  Transmission Date: 20071010
  Serious: Yes (Other)
  Sender: FDA-Public Use
  Company Number: GB-MERCK-0704GBR00047

PATIENT
  Age: 55 Year
  Sex: Male

DRUGS (5)
  1. COZAAR [Suspect]
     Indication: HYPERTENSION
     Route: 048
     Dates: start: 20051114
  2. AMLODIPINE BESYLATE [Suspect]
     Indication: HYPERTENSION
     Route: 048
     Dates: start: 20070212, end: 20070326
  3. ASPIRIN [Concomitant]
     Route: 048
     Dates: start: 20040927
  4. PRAVASTATIN SODIUM [Concomitant]
     Indication: HYPERTENSION
     Route: 065
     Dates: start: 20040109
  5. PRAVASTATIN SODIUM [Concomitant]
     Indication: MYOCARDIAL ISCHAEMIA
     Route: 065
     Dates: start: 20040109

REACTIONS (3)
  - COUGH [None]
  - FOOD INTERACTION [None]
  - MALAISE [None]
